FAERS Safety Report 5362368-1 (Version None)
Quarter: 2007Q2

REPORT INFORMATION
  Report Type: 
  Country: None (occurrence: None)
  Receive Date: 20070530
  Receipt Date: 20070128
  Transmission Date: 20071010
  Serious: No
  Sender: FDA-Public Use
  Company Number: 2007PV029167

PATIENT
  Age: 78 Year
  Sex: Female
  Weight: 69.4003 kg

DRUGS (5)
  1. BYETTA [Suspect]
     Indication: DRUG USE FOR UNKNOWN INDICATION
     Dosage: 10 MCG;QAM;SC ; 5 MCG;SC
     Route: 058
     Dates: start: 20061101, end: 20061201
  2. BYETTA [Suspect]
     Indication: DRUG USE FOR UNKNOWN INDICATION
     Dosage: 10 MCG;QAM;SC ; 5 MCG;SC
     Route: 058
     Dates: start: 20061201
  3. METFORMIN HCL [Concomitant]
  4. ACTOS [Concomitant]
  5. BENACAR [Concomitant]

REACTIONS (4)
  - BLOOD GLUCOSE INCREASED [None]
  - BLOOD PRESSURE DECREASED [None]
  - DIZZINESS [None]
  - WEIGHT DECREASED [None]
